FAERS Safety Report 5348880-X (Version None)
Quarter: 2007Q2

REPORT INFORMATION
  Report Type: 
  Country: None (occurrence: None)
  Receive Date: 20070607
  Receipt Date: 20070529
  Transmission Date: 20071010
  Serious: Yes (Other)
  Sender: FDA-Public Use
  Company Number: PHBS2007NZ08878

PATIENT
  Age: 44 Year
  Sex: Female

DRUGS (4)
  1. CLOZARIL [Suspect]
     Indication: SCHIZOPHRENIA
     Route: 048
     Dates: start: 20061201
  2. CLOZARIL [Suspect]
     Dosage: 300 MG/D
     Route: 048
  3. CLOZARIL [Suspect]
     Dosage: 600 MG/D
     Route: 048
  4. CLOZARIL [Suspect]
     Dosage: 500 MG/D
     Route: 048

REACTIONS (2)
  - ELECTROCARDIOGRAM QT CORRECTED INTERVAL PROLONGED [None]
  - MALAISE [None]
